FAERS Safety Report 25018781 (Version 1)
Quarter: 2025Q1

REPORT INFORMATION
  Report Type: Spontaneous
  Country: US (occurrence: US)
  Receive Date: 20250227
  Receipt Date: 20250227
  Transmission Date: 20250409
  Serious: No
  Sender: AVADEL CNS PHARMACEUTICALS, LLC
  Company Number: US-AVADEL CNS PHARMACEUTICALS, LLC-2025AVA00065

PATIENT
  Age: 38 Year
  Sex: Female
  Weight: 74.649 kg

DRUGS (10)
  1. LUMRYZ [Suspect]
     Active Substance: SODIUM OXYBATE
     Indication: Narcolepsy
     Dosage: 4.5 G, 1X/DAY, EVERY EVENING
     Dates: start: 202412
  2. LUMRYZ [Suspect]
     Active Substance: SODIUM OXYBATE
     Indication: Cataplexy
  3. ISIBLOOM [Concomitant]
     Active Substance: DESOGESTREL\ETHINYL ESTRADIOL
  4. ARMOUR THYROID [Concomitant]
     Active Substance: THYROID, PORCINE
  5. VENLAFAXINE HCL [Concomitant]
     Active Substance: VENLAFAXINE HYDROCHLORIDE
  6. VRAYLAR [Concomitant]
     Active Substance: CARIPRAZINE
  7. DIAZEPAM [Concomitant]
     Active Substance: DIAZEPAM
  8. AMBIEN [Concomitant]
     Active Substance: ZOLPIDEM TARTRATE
  9. TRAZODONE HCL [Concomitant]
     Active Substance: TRAZODONE HYDROCHLORIDE
  10. LAMOTRIGINE [Concomitant]
     Active Substance: LAMOTRIGINE

REACTIONS (2)
  - Illness [Not Recovered/Not Resolved]
  - Drug ineffective [Not Recovered/Not Resolved]

NARRATIVE: CASE EVENT DATE: 20241201
